FAERS Safety Report 5953107-1 (Version None)
Quarter: 2008Q4

REPORT INFORMATION
  Report Type: 
  Country: None (occurrence: None)
  Receive Date: 20081114
  Receipt Date: 20081105
  Transmission Date: 20090506
  Serious: Yes (Hospitalization)
  Sender: FDA-Public Use
  Company Number: US-AMGEN-QUU317605

PATIENT
  Sex: Female

DRUGS (1)
  1. ENBREL [Suspect]
     Indication: RHEUMATOID ARTHRITIS
     Route: 058
     Dates: start: 20050405

REACTIONS (5)
  - HIP ARTHROPLASTY [None]
  - INFECTION [None]
  - RHEUMATOID ARTHRITIS [None]
  - SCOLIOSIS [None]
  - URINARY INCONTINENCE [None]
